FAERS Safety Report 4718063-2 (Version None)
Quarter: 2005Q3

REPORT INFORMATION
  Report Type: 
  Country: None (occurrence: None)
  Receive Date: 20050718
  Receipt Date: 20050412
  Transmission Date: 20060218
  Serious: No
  Sender: FDA-Public Use
  Company Number: 2005000719

PATIENT
  Age: 78 Year
  Sex: Male

DRUGS (1)
  1. TARCEVA [Suspect]
     Indication: CARCINOID TUMOUR
     Dosage: 150 MG (QD), ORAL
     Route: 048

REACTIONS (6)
  - ANAL FISSURE [None]
  - DRY SKIN [None]
  - MUSCLE SPASMS [None]
  - RASH [None]
  - RHINORRHOEA [None]
  - SKIN FISSURES [None]
